FAERS Safety Report 8160041-8 (Version None)
Quarter: 2012Q1

REPORT INFORMATION
  Report Type: 
  Country: None (occurrence: None)
  Receive Date: 20120223
  Receipt Date: 20120217
  Transmission Date: 20120608
  Serious: Yes (Other)
  Sender: FDA-Public Use
  Company Number: JP-GLAXOSMITHKLINE-B0783114A

PATIENT
  Age: 41 Year
  Sex: Female

DRUGS (7)
  1. ACETAMINOPHEN [Concomitant]
     Indication: INFLUENZA
     Route: 048
     Dates: start: 20120215
  2. KOLANTYL [Concomitant]
     Indication: INFLUENZA
     Route: 048
  3. RELENZA [Suspect]
     Indication: INFLUENZA
     Dosage: 20MG PER DAY
     Route: 055
     Dates: start: 20120215
  4. GENINAX [Concomitant]
     Indication: BRONCHITIS
     Dosage: 2IUAX PER DAY
     Route: 048
     Dates: start: 20120215
  5. DEXTROMETHORPHAN HYDROBROMIDE [Concomitant]
     Indication: INFLUENZA
     Route: 048
  6. HUSTAGIN [Concomitant]
     Indication: INFLUENZA
     Route: 048
  7. ALLERGIN [Concomitant]
     Indication: INFLUENZA
     Route: 048

REACTIONS (6)
  - VISUAL ACUITY REDUCED [None]
  - ABNORMAL SENSATION IN EYE [None]
  - DIZZINESS [None]
  - MIOSIS [None]
  - VISION BLURRED [None]
  - BLOOD PRESSURE DECREASED [None]
